FAERS Safety Report 4612584-9 (Version None)
Quarter: 2005Q1

REPORT INFORMATION
  Report Type: 
  Country: None (occurrence: None)
  Receive Date: 20050318
  Receipt Date: 20050311
  Transmission Date: 20050727
  Serious: Yes (Other)
  Sender: FDA-Public Use
  Company Number: US-BRISTOL-MYERS SQUIBB COMPANY-12896353

PATIENT
  Sex: Male

DRUGS (5)
  1. TAXOL [Suspect]
     Indication: PROSTATE CANCER
     Dates: start: 20020213, end: 20020213
  2. ETOPOSIDE [Suspect]
     Indication: PROSTATE CANCER
     Dates: start: 20020213, end: 20020213
  3. ZOLADEX [Suspect]
     Indication: PROSTATE CANCER
     Dates: start: 20020213, end: 20020213
  4. EMCYT [Suspect]
     Indication: PROSTATE CANCER
     Dates: start: 20020213, end: 20020213
  5. RADIATION THERAPY [Suspect]
     Indication: PROSTATE CANCER
     Dates: start: 20010615

REACTIONS (2)
  - ACUTE MYELOID LEUKAEMIA [None]
  - MYELODYSPLASTIC SYNDROME [None]
